FAERS Safety Report 13858332 (Version 11)
Quarter: 2018Q3

REPORT INFORMATION
  Report Type: Report from Study
  Country: US (occurrence: US)
  Receive Date: 20170811
  Receipt Date: 20180830
  Transmission Date: 20181010
  Serious: Yes (Hospitalization)
  Sender: FDA-Public Use
  Company Number: US-SA-2017SA145768

PATIENT
  Age: 35 Year
  Sex: Female
  Weight: 61.2 kg

DRUGS (19)
  1. BACLOFEN. [Concomitant]
     Active Substance: BACLOFEN
     Indication: MUSCLE SPASTICITY
     Dosage: 20 MG,UNK
     Route: 048
     Dates: start: 20101029, end: 201711
  2. ALEMTUZUMAB [Suspect]
     Active Substance: ALEMTUZUMAB
     Indication: MULTIPLE SCLEROSIS RELAPSE
     Dosage: UNK UNK,QD
     Route: 041
     Dates: start: 20170530, end: 20170602
  3. ENOXAPARIN SODIUM. [Concomitant]
     Active Substance: ENOXAPARIN SODIUM
     Dosage: 40 MG,QD
     Route: 058
     Dates: start: 20170621, end: 20170728
  4. NEURONTIN [Concomitant]
     Active Substance: GABAPENTIN
     Indication: MUSCLE SPASTICITY
  5. ANIDULAFUNGIN [Concomitant]
     Active Substance: ANIDULAFUNGIN
     Dosage: 100 MG,QD
     Route: 042
     Dates: start: 20170710, end: 20170727
  6. CHOLESTYRAMINE RESIN [Concomitant]
     Active Substance: CHOLESTYRAMINE
     Dosage: 4 G,BID
     Route: 048
     Dates: start: 20170706, end: 20170728
  7. LEVOFLOXACIN. [Concomitant]
     Active Substance: LEVOFLOXACIN
     Dosage: 150 ML,QD
     Route: 042
     Dates: start: 20170627, end: 20170727
  8. PANTOPRAZOLE SODIUM SESQUIHYDRATE [Concomitant]
     Active Substance: PANTOPRAZOLE SODIUM
     Dosage: 40 MG,QD
     Route: 048
     Dates: start: 20170623, end: 20170728
  9. FOLIC ACID. [Concomitant]
     Active Substance: FOLIC ACID
     Dosage: 2 MG,BID
     Route: 048
     Dates: start: 20170623, end: 20170728
  10. NEURONTIN [Concomitant]
     Active Substance: GABAPENTIN
     Indication: NEURALGIA
     Dosage: 300 MG,UNK
     Route: 048
     Dates: start: 2009, end: 201706
  11. KLONOPIN [Concomitant]
     Active Substance: CLONAZEPAM
     Indication: DEPRESSION
     Dosage: .5 MG,UNK
     Route: 048
     Dates: start: 20130305, end: 201711
  12. DEXTROMETHORPHAN [Concomitant]
     Active Substance: DEXTROMETHORPHAN
     Dosage: 200 MG,Q6H
     Route: 048
     Dates: start: 20170622, end: 20170728
  13. CYCLOBENZAPRINE HYDROCHLORIDE. [Concomitant]
     Active Substance: CYCLOBENZAPRINE HYDROCHLORIDE
     Indication: MUSCLE SPASTICITY
     Dosage: 10 MG,UNK
     Route: 048
     Dates: start: 20130305, end: 201711
  14. VITAMIN B [Concomitant]
     Active Substance: VITAMIN B
     Dosage: 1 DF,BID
     Route: 048
     Dates: start: 20170623, end: 20170728
  15. ALEMTUZUMAB [Suspect]
     Active Substance: ALEMTUZUMAB
     Dosage: UNK UNK,QD
     Route: 041
     Dates: start: 20170605, end: 20170605
  16. ALEMTUZUMAB [Suspect]
     Active Substance: ALEMTUZUMAB
     Dosage: 12 MG
     Route: 041
     Dates: start: 20180602, end: 20180604
  17. BENZONATATE. [Concomitant]
     Active Substance: BENZONATATE
     Dosage: 200 MG,TID
     Route: 048
     Dates: start: 20170622, end: 20170728
  18. CEFEPIME HYDROCHLORIDE. [Concomitant]
     Active Substance: CEFEPIME HYDROCHLORIDE
     Dosage: 2000 MG,Q8H
     Route: 042
     Dates: start: 20170706, end: 20170727
  19. ERGOCALCIFEROL. [Concomitant]
     Active Substance: ERGOCALCIFEROL
     Indication: VITAMIN D DEFICIENCY
     Dosage: 2000 IU,UNK
     Route: 048
     Dates: start: 2011

REACTIONS (6)
  - Thrombocytopenia [Recovered/Resolved]
  - Euthyroid sick syndrome [Recovered/Resolved]
  - Pneumonia legionella [Recovered/Resolved]
  - Pancytopenia [Recovered/Resolved]
  - Systemic inflammatory response syndrome [Recovered/Resolved]
  - Anaemia [Recovering/Resolving]

NARRATIVE: CASE EVENT DATE: 20170620
